FAERS Safety Report 10649510 (Version 1)
Quarter: 2014Q4

REPORT INFORMATION
  Report Type: Spontaneous
  Country: US (occurrence: None)
  Receive Date: 20141205
  Receipt Date: 20141205
  Transmission Date: 20150529
  Serious: No
  Sender: FDA-Public Use
  Company Number: USA-2014102648

PATIENT
  Sex: Male

DRUGS (25)
  1. PRILOSEC (OMEPRAZOLE) [Concomitant]
     Active Substance: OMEPRAZOLE MAGNESIUM
  2. ACYCLOVIR (ACICLOVIR) (ACICLOVIR) [Concomitant]
     Active Substance: ACYCLOVIR
  3. LISINOPRIL. [Concomitant]
     Active Substance: LISINOPRIL
  4. RESTASIS (CICLOSPORIN) [Concomitant]
  5. AMOX TR-POTASSIUM CLAV (CLAVULANATE POTASSIUM, AMOXICILLIN TRIHYDRATE) [Concomitant]
  6. ASPIRIN (ACETYLSALICYLIC ACID) [Concomitant]
     Active Substance: ASPIRIN
  7. CEPHALEXIN (CEFALEXIN) [Concomitant]
     Active Substance: CEPHALEXIN
  8. KYPROLIS [Concomitant]
     Active Substance: CARFILZOMIB
  9. AZITHROMYCIN [Concomitant]
     Active Substance: AZITHROMYCIN ANHYDROUS
  10. FRAGMIN [Concomitant]
     Active Substance: DALTEPARIN SODIUM
  11. TORSEMIDE (TORASEMIDE) [Concomitant]
  12. BUPROPION XL (BUPROPION) UNKNOWN [Concomitant]
     Active Substance: BUPROPION
  13. FLUTICASONE PROPIONATE. [Concomitant]
     Active Substance: FLUTICASONE PROPIONATE
  14. ALLEGRA (FEXOFENADINE HYDROCHLORIDE) [Concomitant]
  15. HYDROCORTISONE. [Concomitant]
     Active Substance: HYDROCORTISONE
  16. FLUOROURACIL. [Concomitant]
     Active Substance: FLUOROURACIL
  17. PRAVASTATIN SODIUM. [Concomitant]
     Active Substance: PRAVASTATIN SODIUM
  18. METOLAZONE. [Concomitant]
     Active Substance: METOLAZONE
  19. FUROSEMIDE. [Concomitant]
     Active Substance: FUROSEMIDE
  20. POMALYST [Suspect]
     Active Substance: POMALIDOMIDE
     Indication: PLASMA CELL MYELOMA
     Dosage: 21 IN 21 D
     Route: 048
     Dates: start: 20130705
  21. VELCADE [Concomitant]
     Active Substance: BORTEZOMIB
  22. CARVEDILOL. [Concomitant]
     Active Substance: CARVEDILOL
  23. OXYCONTIN [Concomitant]
     Active Substance: OXYCODONE HYDROCHLORIDE
  24. CHOLESTYRAMINE (COLESTYRAMINE) [Concomitant]
  25. FLUCONAZOLE. [Concomitant]
     Active Substance: FLUCONAZOLE

REACTIONS (1)
  - Adverse drug reaction [None]
